FAERS Safety Report 21519692 (Version 13)
Quarter: 2024Q1

REPORT INFORMATION
  Report Type: Report from Study
  Country: CO (occurrence: CO)
  Receive Date: 20221028
  Receipt Date: 20240131
  Transmission Date: 20240410
  Serious: Yes (Other)
  Sender: FDA-Public Use
  Company Number: CO-TAKEDA-2021TUS025708

PATIENT
  Age: 67 Year
  Sex: Female
  Weight: 86 kg

DRUGS (3)
  1. VEDOLIZUMAB [Suspect]
     Active Substance: VEDOLIZUMAB
     Indication: Crohn^s disease
     Dosage: 300 MILLIGRAM
     Route: 042
     Dates: start: 20210514
  2. VEDOLIZUMAB [Suspect]
     Active Substance: VEDOLIZUMAB
     Dosage: 300 MILLIGRAM, Q4WEEKS
     Route: 042
     Dates: start: 20231023
  3. NATALIZUMAB [Suspect]
     Active Substance: NATALIZUMAB
     Indication: Product used for unknown indication
     Dosage: UNK
     Route: 065

REACTIONS (17)
  - Intestinal obstruction [Unknown]
  - Lower limb fracture [Recovering/Resolving]
  - Drug ineffective [Unknown]
  - Product availability issue [Unknown]
  - Off label use [Unknown]
  - Product dose omission issue [Unknown]
  - Urinary tract infection [Recovering/Resolving]
  - Productive cough [Unknown]
  - Malaise [Unknown]
  - Oropharyngeal pain [Unknown]
  - Fall [Recovering/Resolving]
  - Pain [Recovering/Resolving]
  - Frequent bowel movements [Not Recovered/Not Resolved]
  - Gastrointestinal inflammation [Recovering/Resolving]
  - Product administration error [Unknown]
  - Abdominal pain [Recovering/Resolving]
  - Arthralgia [Recovering/Resolving]

NARRATIVE: CASE EVENT DATE: 20220311
